FAERS Safety Report 7499305-X (Version None)
Quarter: 2011Q2

REPORT INFORMATION
  Report Type: 
  Country: None (occurrence: None)
  Receive Date: 20110524
  Receipt Date: 20110518
  Transmission Date: 20111010
  Serious: Yes (Death, Hospitalization, Other)
  Sender: FDA-Public Use
  Company Number: US-ASTRAZENECA-2010SE48032

PATIENT
  Age: 694 Month
  Sex: Female

DRUGS (11)
  1. NEXIUM [Suspect]
     Indication: GASTROOESOPHAGEAL REFLUX DISEASE
     Route: 048
  2. AMBIEN [Concomitant]
  3. TALWIN NX [Concomitant]
  4. LORTAB [Concomitant]
  5. PHENERGAN INJECTION [Concomitant]
  6. PROTONIX [Concomitant]
  7. INDERAL LA [Concomitant]
  8. ALDACTONE [Concomitant]
  9. ZANTAC [Concomitant]
  10. NYSTATIN [Concomitant]
  11. PEPCID [Concomitant]

REACTIONS (26)
  - CONFUSIONAL STATE [None]
  - ALCOHOLIC LIVER DISEASE [None]
  - RENAL INJURY [None]
  - OEDEMA [None]
  - FAECES DISCOLOURED [None]
  - MALAISE [None]
  - ABDOMINAL PAIN [None]
  - DYSSTASIA [None]
  - MENTAL STATUS CHANGES [None]
  - ABDOMINAL DISTENSION [None]
  - LISTLESS [None]
  - LOCALISED OEDEMA [None]
  - CHILLS [None]
  - RENAL FAILURE [None]
  - DERMATITIS [None]
  - ASTHENIA [None]
  - AMMONIA INCREASED [None]
  - HEPATIC ENCEPHALOPATHY [None]
  - NAUSEA [None]
  - FATIGUE [None]
  - ILL-DEFINED DISORDER [None]
  - ABNORMAL WEIGHT GAIN [None]
  - BLOOD CREATININE INCREASED [None]
  - PYREXIA [None]
  - HAEMATEMESIS [None]
  - VOMITING [None]
